FAERS Safety Report 4407749-5 (Version None)
Quarter: 2004Q3

REPORT INFORMATION
  Report Type: 
  Country: None (occurrence: None)
  Receive Date: 20040726
  Receipt Date: 20040723
  Transmission Date: 20050211
  Serious: Yes (Death, Hospitalization)
  Sender: FDA-Public Use
  Company Number: PHBS2004ES09714

PATIENT
  Age: 11 Year
  Sex: Female

DRUGS (4)
  1. TRILEPTAL [Suspect]
     Indication: OBSESSIVE-COMPULSIVE DISORDER
     Dosage: 600 MG/D
     Route: 048
     Dates: start: 20031015
  2. RISPERDAL [Suspect]
     Indication: OBSESSIVE-COMPULSIVE DISORDER
     Dosage: 2 MG/D
     Route: 048
     Dates: start: 20031015
  3. MODECATE ^SANOFI WINTHROP^ [Suspect]
     Indication: PSYCHOMOTOR AGITATION
     Dosage: 12 MG/D
     Route: 030
     Dates: start: 20031113
  4. AKINETON [Suspect]
     Indication: PSYCHOMOTOR AGITATION
     Dosage: 2.5 MG/D
     Route: 030
     Dates: start: 20031113

REACTIONS (3)
  - MYOCARDITIS [None]
  - PYREXIA [None]
  - SEROLOGY NEGATIVE [None]
